FAERS Safety Report 21578061 (Version 5)
Quarter: 2024Q1

REPORT INFORMATION
  Report Type: Report from Study
  Country: CA (occurrence: CA)
  Receive Date: 20221110
  Receipt Date: 20240214
  Transmission Date: 20240409
  Serious: Yes (Other)
  Sender: FDA-Public Use
  Company Number: CA-TAKEDA-2022TUS082827

PATIENT
  Age: 40 Year
  Sex: Female

DRUGS (6)
  1. VEDOLIZUMAB [Suspect]
     Active Substance: VEDOLIZUMAB
     Indication: Colitis ulcerative
     Dosage: 300 MILLIGRAM
     Route: 042
     Dates: start: 20220210
  2. VEDOLIZUMAB [Suspect]
     Active Substance: VEDOLIZUMAB
     Dosage: 300 MILLIGRAM
     Route: 042
  3. VEDOLIZUMAB [Suspect]
     Active Substance: VEDOLIZUMAB
     Dosage: 300 MILLIGRAM
     Route: 042
  4. VEDOLIZUMAB [Suspect]
     Active Substance: VEDOLIZUMAB
     Dosage: 300 MILLIGRAM, Q4WEEKS
     Route: 042
     Dates: start: 20240209
  5. PANTOPRAZOLE [Suspect]
     Active Substance: PANTOPRAZOLE
     Indication: Abdominal discomfort
     Dosage: 49 MILLIGRAM
     Route: 048
     Dates: start: 20230804
  6. Salofalk [Concomitant]
     Dosage: UNK

REACTIONS (6)
  - Haematochezia [Unknown]
  - Rectal ulcer [Unknown]
  - Colitis ulcerative [Recovering/Resolving]
  - Mucous stools [Unknown]
  - Abdominal discomfort [Recovering/Resolving]
  - Off label use [Unknown]

NARRATIVE: CASE EVENT DATE: 20240209
